FAERS Safety Report 9296799 (Version 1)
Quarter: 2013Q2

REPORT INFORMATION
  Report Type: Spontaneous
  Country: US (occurrence: US)
  Receive Date: 20130517
  Receipt Date: 20130517
  Transmission Date: 20140414
  Serious: Yes (Other)
  Sender: FDA-Public Use
  Company Number: US-BANPHARM-20131330

PATIENT
  Age: 2 Year
  Sex: Female
  Weight: 16.33 kg

DRUGS (1)
  1. ALEVE LIQUID GELS 220 MG [Suspect]
     Indication: ACCIDENTAL EXPOSURE TO PRODUCT BY CHILD
     Dosage: 1 DF, ONCE,
     Route: 048
     Dates: start: 20130509, end: 20130509

REACTIONS (4)
  - Choking [Recovered/Resolved]
  - Retching [Recovered/Resolved]
  - Accidental exposure to product by child [Unknown]
  - Failure of child resistant mechanism for pharmaceutical product [Unknown]
